FAERS Safety Report 6840456-8 (Version None)
Quarter: 2010Q3

REPORT INFORMATION
  Report Type: 
  Country: None (occurrence: None)
  Receive Date: 20100714
  Receipt Date: 20100706
  Transmission Date: 20110219
  Serious: Yes (Hospitalization, Other)
  Sender: FDA-Public Use
  Company Number: US-JNJFOC-20100301233

PATIENT
  Sex: Female

DRUGS (4)
  1. LEVAQUIN [Suspect]
     Indication: INFECTION
     Route: 048
  2. LEVAQUIN [Suspect]
     Route: 042
  3. PREDNISONE [Suspect]
     Indication: AUTOIMMUNE DISORDER
  4. CIPROFLOXACIN [Suspect]
     Indication: INFECTION

REACTIONS (2)
  - AUTOIMMUNE DISORDER [None]
  - TENDON RUPTURE [None]
